FAERS Safety Report 8228138-1 (Version None)
Quarter: 2012Q1

REPORT INFORMATION
  Report Type: 
  Country: None (occurrence: None)
  Receive Date: 20120322
  Receipt Date: 20111230
  Transmission Date: 20120608
  Serious: No
  Sender: FDA-Public Use
  Company Number: US-BRISTOL-MYERS SQUIBB COMPANY-16298507

PATIENT
  Age: 71 Year
  Sex: Male
  Weight: 92 kg

DRUGS (6)
  1. ERBITUX [Suspect]
     Indication: COLON CANCER
     Dosage: LAST DOSE:14DEC2011 1ST INF:DOUBLE INF 2-4TH:SINGLE INF
     Dates: start: 20111101
  2. PRAVASTATIN SODIUM [Concomitant]
  3. VITAMIN TAB [Concomitant]
  4. BENADRYL [Concomitant]
     Indication: PREMEDICATION
  5. ERBITUX [Suspect]
     Indication: BLADDER CANCER
     Dosage: LAST DOSE:14DEC2011 1ST INF:DOUBLE INF 2-4TH:SINGLE INF
     Dates: start: 20111101
  6. VITAMIN B COMPLEX CAP [Concomitant]

REACTIONS (3)
  - ACNE [None]
  - INFLUENZA LIKE ILLNESS [None]
  - DERMATITIS ACNEIFORM [None]
